FAERS Safety Report 8297980-3 (Version None)
Quarter: 2012Q2

REPORT INFORMATION
  Report Type: 
  Country: None (occurrence: None)
  Receive Date: 20120419
  Receipt Date: 20111018
  Transmission Date: 20120825
  Serious: Yes (Hospitalization, Other)
  Sender: FDA-Public Use
  Company Number: US-BAYER-2010-006397

PATIENT
  Age: 36 Year
  Sex: Female
  Weight: 113.38 kg

DRUGS (16)
  1. TRICOR [Concomitant]
     Dosage: UNK UNK, HS
     Route: 048
     Dates: start: 20080812, end: 20100721
  2. PSEUDOEPHEDRINE-CHLORPHENIRAMINE [Concomitant]
     Dosage: UNK
     Dates: start: 20070521, end: 20080820
  3. NEMBUTAL [Concomitant]
  4. METFORMIN HCL [Concomitant]
     Indication: INSULIN RESISTANCE
     Dosage: 500 MG, BID
     Dates: start: 20080602, end: 20090601
  5. METAMUCIL-2 [Concomitant]
  6. ZESTORETIC [Concomitant]
     Dosage: UNK UNK, QD
     Route: 048
     Dates: start: 20080812, end: 20080926
  7. TYLENOL (CAPLET) [Concomitant]
     Route: 048
  8. AMBIEN [Concomitant]
  9. LOVASTATIN [Concomitant]
     Indication: HYPERCHOLESTEROLAEMIA
     Dosage: UNK
     Dates: start: 20080424, end: 20090801
  10. ATIVAN [Concomitant]
     Dosage: UNK UNK, PRN
     Route: 048
     Dates: start: 20080424, end: 20090901
  11. ZOCOR [Concomitant]
     Dosage: UNK UNK, QD
     Route: 048
     Dates: start: 20080602, end: 20100730
  12. DYAZIDE [Concomitant]
     Dosage: UNK UNK, QD
     Dates: start: 20080626, end: 20081218
  13. LISINOPRIL [Concomitant]
  14. YAZ [Suspect]
     Dosage: UNK
     Route: 048
     Dates: start: 20060601, end: 20080501
  15. ASPIRIN [Concomitant]
     Route: 048
  16. GLUCOPHAGE XR [Concomitant]

REACTIONS (5)
  - CEREBROVASCULAR ACCIDENT [None]
  - PAIN [None]
  - GALLBLADDER DISORDER [None]
  - CHOLECYSTITIS CHRONIC [None]
  - ANXIETY [None]
